FAERS Safety Report 8013952-8 (Version None)
Quarter: 2011Q4

REPORT INFORMATION
  Report Type: 
  Country: None (occurrence: None)
  Receive Date: 20111229
  Receipt Date: 20111222
  Transmission Date: 20120403
  Serious: Yes (Other)
  Sender: FDA-Public Use
  Company Number: AR-ROCHE-1025679

PATIENT
  Sex: Female

DRUGS (1)
  1. LUCENTIS [Suspect]
     Indication: RETINAL VASCULAR THROMBOSIS
     Dosage: DF: AMPOULE
     Route: 050
     Dates: start: 20110901

REACTIONS (2)
  - WRIST FRACTURE [None]
  - FALL [None]
